FAERS Safety Report 16807673 (Version 1)
Quarter: 2019Q3

REPORT INFORMATION
  Report Type: Spontaneous
  Country: US (occurrence: US)
  Receive Date: 20190914
  Receipt Date: 20190914
  Transmission Date: 20191005
  Serious: Yes (Disabling)
  Sender: FDA-Public Use
  Company Number: US-009507513-1909USA004642

PATIENT
  Age: 65 Year
  Sex: Female

DRUGS (3)
  1. REMERON [Suspect]
     Active Substance: MIRTAZAPINE
     Indication: DEPRESSION
     Dosage: 7.5 MILLIGRAM
     Dates: start: 20190523, end: 2019
  2. REMERON [Suspect]
     Active Substance: MIRTAZAPINE
     Dosage: 7.5 MILLIGRAM
     Route: 048
     Dates: start: 2019, end: 201906
  3. REMERON [Suspect]
     Active Substance: MIRTAZAPINE
     Indication: ANXIETY
     Dosage: 15 MILLIGRAM
     Dates: start: 2019, end: 2019

REACTIONS (3)
  - Nerve injury [Unknown]
  - Intentional product misuse [Unknown]
  - Persistent genital arousal disorder [Not Recovered/Not Resolved]

NARRATIVE: CASE EVENT DATE: 2019
